FAERS Safety Report 6841827-6 (Version None)
Quarter: 2010Q3

REPORT INFORMATION
  Report Type: 
  Country: None (occurrence: None)
  Receive Date: 20100714
  Receipt Date: 20070820
  Transmission Date: 20110219
  Serious: Yes (Other)
  Sender: FDA-Public Use
  Company Number: US-PFIZER INC-2007059968

PATIENT
  Sex: Female
  Weight: 75 kg

DRUGS (5)
  1. CHANTIX [Suspect]
     Indication: SMOKING CESSATION THERAPY
     Dates: start: 20070717
  2. NEXIUM [Concomitant]
  3. DOXYCYCLINE [Concomitant]
  4. CORTICOSTEROIDS [Concomitant]
     Dates: end: 20070716
  5. ALL OTHER THERAPEUTIC PRODUCTS [Concomitant]

REACTIONS (1)
  - TREMOR [None]
